FAERS Safety Report 21949941 (Version 8)
Quarter: 2024Q2

REPORT INFORMATION
  Report Type: Report from Study
  Country: PT (occurrence: PT)
  Receive Date: 20230203
  Receipt Date: 20240411
  Transmission Date: 20240716
  Serious: Yes (Other)
  Sender: FDA-Public Use
  Company Number: PT-ROCHE-3252397

PATIENT
  Age: 76 Year
  Sex: Female

DRUGS (48)
  1. ANASTROZOLE [Suspect]
     Active Substance: ANASTROZOLE
     Indication: HER2 positive breast cancer
     Dosage: 4 MILLIGRAM, QD
     Route: 048
     Dates: start: 201606, end: 201610
  2. DOCETAXEL [Suspect]
     Active Substance: DOCETAXEL\DOCETAXEL ANHYDROUS
     Indication: Breast cancer metastatic
     Dosage: 75 MILLIGRAM, Q3W
     Route: 042
     Dates: start: 20170227, end: 20170529
  3. DOCETAXEL [Suspect]
     Active Substance: DOCETAXEL\DOCETAXEL ANHYDROUS
     Indication: HER2 positive breast cancer
  4. TAMOXIFEN [Suspect]
     Active Substance: TAMOXIFEN
     Indication: Breast cancer metastatic
     Dosage: 20 MILLIGRAM, QD
     Route: 048
     Dates: start: 20170629, end: 201808
  5. TAMOXIFEN [Suspect]
     Active Substance: TAMOXIFEN
     Indication: HER2 positive breast cancer
  6. TRASTUZUMAB [Suspect]
     Active Substance: TRASTUZUMAB
     Indication: Breast cancer metastatic
     Dosage: 600 MILLIGRAM, Q3W
     Route: 042
     Dates: start: 20170227, end: 20170927
  7. TRASTUZUMAB [Suspect]
     Active Substance: TRASTUZUMAB
     Indication: HER2 positive breast cancer
     Dosage: 600 MILLIGRAM, Q3W
     Route: 042
     Dates: start: 20171108, end: 20180903
  8. ADO-TRASTUZUMAB EMTANSINE [Suspect]
     Active Substance: ADO-TRASTUZUMAB EMTANSINE
     Indication: Breast cancer metastatic
     Dosage: 3.6 MICROGRAM, Q3W
     Route: 042
     Dates: start: 20180917, end: 202201
  9. ADO-TRASTUZUMAB EMTANSINE [Suspect]
     Active Substance: ADO-TRASTUZUMAB EMTANSINE
     Indication: HER2 positive breast cancer
  10. PERTUZUMAB [Suspect]
     Active Substance: PERTUZUMAB
     Indication: Breast cancer metastatic
     Dosage: 600 MILLILITER, Q3W
     Route: 042
     Dates: start: 20170227, end: 20170927
  11. PERTUZUMAB [Suspect]
     Active Substance: PERTUZUMAB
     Indication: HER2 positive breast cancer
     Dosage: 600 MILLILITER, Q3W
     Route: 042
     Dates: start: 20171108, end: 20180813
  12. FOSFOMYCIN [Suspect]
     Active Substance: FOSFOMYCIN
     Indication: Urinary tract infection
     Dosage: UNK
     Route: 065
     Dates: start: 20180418
  13. CAPECITABINE [Suspect]
     Active Substance: CAPECITABINE
     Indication: Breast cancer metastatic
     Dosage: 1300 MILLIGRAM, QD
     Route: 048
     Dates: start: 20200331, end: 20200602
  14. CAPECITABINE [Suspect]
     Active Substance: CAPECITABINE
     Indication: HER2 positive breast cancer
     Dosage: 1800 MILLIGRAM, QD
     Route: 048
     Dates: start: 20200211, end: 20200303
  15. CAPECITABINE [Suspect]
     Active Substance: CAPECITABINE
     Dosage: 900 MILLIGRAM, QD
     Route: 048
     Dates: start: 20200616, end: 20210831
  16. ENHERTU [Suspect]
     Active Substance: FAM-TRASTUZUMAB DERUXTECAN-NXKI
     Indication: Breast cancer metastatic
     Dosage: 5.4 MILLIGRAM/KILOGRAM, Q3W
     Route: 042
     Dates: start: 20211013, end: 20211230
  17. ENHERTU [Suspect]
     Active Substance: FAM-TRASTUZUMAB DERUXTECAN-NXKI
     Indication: HER2 positive breast cancer
     Dosage: 4.4 MILLIGRAM/KILOGRAM, Q3W
     Route: 042
     Dates: start: 20220111, end: 20220217
  18. ENHERTU [Suspect]
     Active Substance: FAM-TRASTUZUMAB DERUXTECAN-NXKI
     Dosage: 4.4 MILLIGRAM/KILOGRAM, Q3W
     Route: 042
     Dates: start: 20220302, end: 20220421
  19. LAPATINIB [Suspect]
     Active Substance: LAPATINIB
     Indication: Breast cancer metastatic
     Dosage: 1250 MILLIGRAM, QD
     Route: 048
     Dates: start: 20200211, end: 20200303
  20. LAPATINIB [Suspect]
     Active Substance: LAPATINIB
     Indication: HER2 positive breast cancer
     Dosage: 1000 MILLIGRAM, QD
     Route: 048
     Dates: start: 20200331, end: 20210831
  21. OFLOXACIN [Concomitant]
     Active Substance: OFLOXACIN
     Indication: Product used for unknown indication
     Dosage: 200 MILLIGRAM
     Route: 065
     Dates: start: 20170529
  22. Nolotil [Concomitant]
     Indication: Product used for unknown indication
     Dosage: UNK
     Route: 065
  23. ZALDIAR [Concomitant]
     Active Substance: ACETAMINOPHEN\TRAMADOL HYDROCHLORIDE
     Indication: Product used for unknown indication
     Dosage: UNK
     Route: 065
     Dates: start: 20190326
  24. BILASTINE [Concomitant]
     Active Substance: BILASTINE
     Indication: Product used for unknown indication
     Dosage: UNK
     Route: 065
     Dates: start: 20180418
  25. ETHYL LOFLAZEPATE [Concomitant]
     Active Substance: ETHYL LOFLAZEPATE
     Indication: Product used for unknown indication
     Dosage: 40 MILLIGRAM
     Route: 065
     Dates: start: 2016
  26. ZOLEDRONIC ACID [Concomitant]
     Active Substance: ZOLEDRONIC ACID
     Indication: Breast cancer metastatic
     Dosage: 4 MILLIGRAM, MONTHLY(IN EVERY 4 WEEKS)
     Route: 042
     Dates: start: 20170227
  27. ZOLEDRONIC ACID [Concomitant]
     Active Substance: ZOLEDRONIC ACID
     Indication: HER2 positive breast cancer
  28. TRAMADOL [Concomitant]
     Active Substance: TRAMADOL\TRAMADOL HYDROCHLORIDE
     Indication: Pain
     Dosage: UNK
     Route: 065
  29. VALACYCLOVIR HYDROCHLORIDE [Concomitant]
     Active Substance: VALACYCLOVIR HYDROCHLORIDE
     Indication: Product used for unknown indication
     Dosage: UNK
     Route: 065
     Dates: start: 20180328, end: 20180418
  30. ACETAMINOPHEN [Concomitant]
     Active Substance: ACETAMINOPHEN
     Indication: Pain
     Dosage: UNK
     Route: 065
  31. Fucidine [Concomitant]
     Indication: Product used for unknown indication
     Dosage: UNK
     Route: 065
     Dates: start: 20200110
  32. POTASSIUM [Concomitant]
     Active Substance: POTASSIUM
     Indication: Hypokalaemia
     Dosage: UNK
     Route: 065
  33. LOPERAMIDE [Concomitant]
     Active Substance: LOPERAMIDE
     Indication: Diarrhoea
     Dosage: UNK
     Route: 065
  34. BACTRIM [Concomitant]
     Active Substance: SULFAMETHOXAZOLE\TRIMETHOPRIM
     Indication: Urinary tract infection
     Dosage: UNK
     Route: 065
     Dates: start: 201802, end: 201803
  35. CALCIUM\VITAMIN D [Concomitant]
     Active Substance: CALCIUM\VITAMIN D
     Dosage: UNK
     Route: 065
  36. XARELTO [Concomitant]
     Active Substance: RIVAROXABAN
     Indication: Product used for unknown indication
     Dosage: 20 MILLIGRAM, QD
     Route: 065
     Dates: start: 20161228
  37. MAGNESIUM [Concomitant]
     Active Substance: MAGNESIUM
     Indication: Hypomagnesaemia
     Dosage: UNK
     Route: 065
     Dates: start: 20180220
  38. ARCOXIA [Concomitant]
     Active Substance: ETORICOXIB
     Indication: Product used for unknown indication
     Dosage: UNK
     Route: 065
  39. BISOPROLOL [Concomitant]
     Active Substance: BISOPROLOL\BISOPROLOL FUMARATE
     Indication: Product used for unknown indication
     Dosage: 2.5 MILLIGRAM, QD
     Route: 065
     Dates: start: 2016
  40. POLYETHYLENE GLYCOLS [Concomitant]
     Active Substance: POLYETHYLENE GLYCOLS
     Indication: Constipation
     Dosage: UNK, DAILY
     Route: 065
     Dates: start: 20211116
  41. ESOMEPRAZOLE [Concomitant]
     Active Substance: ESOMEPRAZOLE
     Indication: Product used for unknown indication
     Dosage: UNK, QD
     Route: 065
     Dates: start: 20200324
  42. FLUOXETINE HYDROCHLORIDE [Concomitant]
     Active Substance: FLUOXETINE HYDROCHLORIDE
     Indication: Depression
     Dosage: UNK
     Route: 065
     Dates: start: 20170926
  43. METOCLOPRAMIDE [Concomitant]
     Active Substance: METOCLOPRAMIDE
     Indication: Product used for unknown indication
     Dosage: UNK
     Route: 065
  44. Codipront [Concomitant]
     Indication: Cough
     Dosage: UNK
     Route: 065
  45. METFORMIN [Concomitant]
     Active Substance: METFORMIN HYDROCHLORIDE
     Indication: Product used for unknown indication
     Dosage: 850 MILLIGRAM, BID
     Route: 065
     Dates: start: 2016
  46. OMEPRAZOLE [Concomitant]
     Active Substance: OMEPRAZOLE
     Indication: Product used for unknown indication
     Dosage: 20 MILLIGRAM, QD
     Route: 065
     Dates: start: 2016
  47. AMOXICILLIN [Concomitant]
     Active Substance: AMOXICILLIN
     Indication: Product used for unknown indication
     Dosage: UNK
     Route: 065
     Dates: start: 202101
  48. SIMVASTATIN [Concomitant]
     Active Substance: SIMVASTATIN
     Dosage: UNK
     Route: 065
     Dates: start: 20160615

REACTIONS (3)
  - Pneumonitis [Recovered/Resolved]
  - Neutropenia [Recovered/Resolved]
  - Anaemia [Recovered/Resolved]

NARRATIVE: CASE EVENT DATE: 20211223
